FAERS Safety Report 9417113 (Version 2)
Quarter: 2013Q3

REPORT INFORMATION
  Report Type: Spontaneous
  Country: AU (occurrence: AU)
  Receive Date: 20130724
  Receipt Date: 20130816
  Transmission Date: 20140515
  Serious: Yes (Death, Hospitalization, Other)
  Sender: FDA-Public Use
  Company Number: AU-B.I. PHARMACEUTICALS,INC./RIDGEFIELD-2013-AU-00883AU

PATIENT
  Age: 90 Year
  Sex: Female

DRUGS (13)
  1. PRADAXA [Suspect]
     Indication: CEREBROVASCULAR ACCIDENT PROPHYLAXIS
     Dosage: 220 MG
     Dates: start: 20110926
  2. PRADAXA [Suspect]
     Indication: ATRIAL FIBRILLATION
  3. LASIX [Concomitant]
     Indication: CARDIAC FAILURE CONGESTIVE
  4. DUROGESIC [Concomitant]
     Indication: PAIN
  5. METOPROLOL [Concomitant]
     Indication: BLOOD PRESSURE
  6. SOMAC [Concomitant]
     Indication: GASTROOESOPHAGEAL REFLUX DISEASE
  7. ZOLOFT [Concomitant]
     Indication: DEPRESSION
  8. POLY TEARS [Concomitant]
     Indication: EYE DISORDER
  9. POLY VISC [Concomitant]
     Indication: EYE DISORDER
  10. SYSTANE [Concomitant]
     Indication: EYE DISORDER
  11. TEMAZE [Concomitant]
     Indication: SLEEP DISORDER
  12. MEGAFOL [Concomitant]
  13. PANADOL OSTEO [Concomitant]

REACTIONS (5)
  - Death [Fatal]
  - Brain neoplasm [Unknown]
  - Fall [Recovered/Resolved]
  - Oedema [Unknown]
  - Psychotic disorder [Unknown]
